FAERS Safety Report 12626862 (Version 2)
Quarter: 2016Q3

REPORT INFORMATION
  Report Type: Spontaneous
  Country: HK (occurrence: HK)
  Receive Date: 20160805
  Receipt Date: 20160809
  Transmission Date: 20161109
  Serious: Yes (Other)
  Sender: FDA-Public Use
  Company Number: HK-PFIZER INC-2016376872

PATIENT
  Age: 43 Year
  Weight: 56 kg

DRUGS (4)
  1. ZELDOX [Suspect]
     Active Substance: ZIPRASIDONE
     Dosage: 80 MG, UNK
  2. ZELDOX [Suspect]
     Active Substance: ZIPRASIDONE
     Dosage: 40 MG, UNK
     Dates: start: 201401
  3. ZELDOX [Suspect]
     Active Substance: ZIPRASIDONE
     Dosage: 160 MG, UNK
  4. ZELDOX [Suspect]
     Active Substance: ZIPRASIDONE
     Dosage: 120 MG, UNK

REACTIONS (4)
  - Hallucination [Unknown]
  - Mental disorder [Unknown]
  - Anxiety [Unknown]
  - Abnormal behaviour [Unknown]
